FAERS Safety Report 16066022 (Version 2)
Quarter: 2019Q2

REPORT INFORMATION
  Report Type: Spontaneous
  Country: DK (occurrence: DK)
  Receive Date: 20190313
  Receipt Date: 20190415
  Transmission Date: 20190711
  Serious: Yes (Other)
  Sender: FDA-Public Use
  Company Number: DK-ACCORD-112791

PATIENT
  Age: 61 Year
  Sex: Female

DRUGS (9)
  1. TAXOTERE [Suspect]
     Active Substance: DOCETAXEL
     Indication: HEPATIC CANCER RECURRENT
     Dosage: STRENGTH: 20 MG/ML
     Route: 042
     Dates: start: 201003, end: 201108
  2. FEMAR [Concomitant]
     Active Substance: LETROZOLE
     Indication: HEPATIC CANCER RECURRENT
     Dosage: STRENGTH: 2,5 MG
     Route: 048
     Dates: start: 2009, end: 201108
  3. GEMCITABINE/GEMCITABINE HYDROCHLORIDE [Suspect]
     Active Substance: GEMCITABINE\GEMCITABINE HYDROCHLORIDE
     Indication: METASTASES TO LIVER
     Route: 042
     Dates: start: 201610, end: 2017
  4. NAVELBINE [Suspect]
     Active Substance: VINORELBINE TARTRATE
     Indication: METASTASES TO LIVER
     Route: 048
     Dates: start: 201507, end: 2016
  5. EPIRUBICIN [Suspect]
     Active Substance: EPIRUBICIN
     Indication: HEPATIC CANCER RECURRENT
     Route: 042
     Dates: start: 201108, end: 201206
  6. XELODA [Concomitant]
     Active Substance: CAPECITABINE
     Indication: HEPATIC CANCER RECURRENT
     Dosage: STRENGTH: 150 MG
     Route: 048
     Dates: start: 201206, end: 2012
  7. OXALIPLATIN. [Suspect]
     Active Substance: OXALIPLATIN
     Indication: HEPATIC CANCER RECURRENT
     Dosage: STRENGTH: 5 MG/ML
     Route: 042
     Dates: start: 201206, end: 2012
  8. PACLITAXEL/PACLITAXEL LIPOSOME [Suspect]
     Active Substance: PACLITAXEL
     Indication: HEPATIC CANCER RECURRENT
     Dosage: STRENGTH: 6 MG/ML
     Route: 042
     Dates: start: 201206, end: 2016
  9. HALAVEN [Suspect]
     Active Substance: ERIBULIN MESYLATE
     Indication: HEPATIC CANCER RECURRENT
     Dosage: STRENGTH: 0.44 MG/ML
     Route: 042
     Dates: start: 20171130

REACTIONS (15)
  - Dizziness [Not Recovered/Not Resolved]
  - Off label use [Unknown]
  - Paraesthesia [Not Recovered/Not Resolved]
  - Dysphagia [Not Recovered/Not Resolved]
  - Chest pain [Not Recovered/Not Resolved]
  - Dyspnoea [Recovered/Resolved]
  - Malaise [Not Recovered/Not Resolved]
  - Palpitations [Not Recovered/Not Resolved]
  - Disturbance in attention [Not Recovered/Not Resolved]
  - Ataxia [Not Recovered/Not Resolved]
  - Cardiac dysfunction [Recovered/Resolved]
  - Fatigue [Not Recovered/Not Resolved]
  - Tremor [Not Recovered/Not Resolved]
  - Asthenia [Not Recovered/Not Resolved]
  - Condition aggravated [Unknown]

NARRATIVE: CASE EVENT DATE: 2010
